FAERS Safety Report 8800913 (Version 1)
Quarter: 2012Q4

REPORT INFORMATION
  Report Type: 
  Country: IT (occurrence: IT)
  Receive Date: 20120921
  Receipt Date: 20120921
  Transmission Date: 20130627
  Serious: Yes (Hospitalization)
  Sender: FDA-Public Use
  Company Number: IT-WATSON-2012-16246

PATIENT
  Age: 69 Year
  Sex: Male

DRUGS (5)
  1. CARVEDILOL [Suspect]
     Indication: HYPERTENSION
     Dosage: 12.5 mg, daily
     Route: 048
     Dates: start: 20110101, end: 20120821
  2. ENALAPRIL MALEATE (UNKNOWN) [Suspect]
     Indication: HYPERTENSION
     Dosage: 10 mg, daily
     Route: 048
     Dates: start: 20110101, end: 20120821
  3. ZOLERIC [Concomitant]
     Indication: HYPERURICAEMIA
     Dosage: 30 DIVISIBLE TABLETS
     Route: 065
  4. CARDIOASPIRIN [Concomitant]
     Indication: CARDIOVASCULAR EVENT PROPHYLAXIS
     Dosage: 30 tablets
     Route: 065
  5. SIVASTIN [Concomitant]
     Indication: HYPERCHOLESTEROLAEMIA
     Dosage: 28 tablets
     Route: 065

REACTIONS (1)
  - Hyperkalaemia [Recovered/Resolved]
